FAERS Safety Report 4894728-7 (Version None)
Quarter: 2006Q1

REPORT INFORMATION
  Report Type: 
  Country: None (occurrence: None)
  Receive Date: 20060127
  Receipt Date: 20060127
  Transmission Date: 20060701
  Serious: Yes (Disabling)
  Sender: FDA-Public Use
  Company Number: None

PATIENT
  Age: 49 Year
  Sex: Male
  Weight: 67.586 kg

DRUGS (11)
  1. RITUXAN [Suspect]
     Indication: NON-HODGKIN'S LYMPHOMA
     Dosage: 708 MG 50 CC/H INC 225 CC/H IV DRIP
     Route: 041
     Dates: start: 20050908, end: 20050908
  2. FLUOXETINE [Concomitant]
  3. OMEPERAZOLE [Concomitant]
  4. NPH INSULIN [Concomitant]
  5. SIMVISTATIN [Concomitant]
  6. MIRTAZAPINE [Concomitant]
  7. MULTIVITAMIN/MINERAL [Concomitant]
  8. IBUPROFEN [Concomitant]
  9. GLIPIZIDE [Concomitant]
  10. CYANOCOBALAMIN [Concomitant]
  11. ASPIRIN [Concomitant]

REACTIONS (5)
  - EYE OEDEMA [None]
  - HYPOAESTHESIA [None]
  - INFUSION RELATED REACTION [None]
  - PRURITUS [None]
  - SNEEZING [None]
